FAERS Safety Report 24859061 (Version 2)
Quarter: 2025Q1

REPORT INFORMATION
  Report Type: Report from Study
  Country: US (occurrence: US)
  Receive Date: 20250118
  Receipt Date: 20250129
  Transmission Date: 20250409
  Serious: Yes (Other)
  Sender: ABBVIE
  Company Number: US-ABBVIE-6087295

PATIENT
  Sex: Female

DRUGS (1)
  1. SKYRIZI [Suspect]
     Active Substance: RISANKIZUMAB-RZAA
     Indication: Psoriasis
     Route: 058
     Dates: start: 20231230

REACTIONS (4)
  - Elbow operation [Recovering/Resolving]
  - Post procedural infection [Recovering/Resolving]
  - Procedural pain [Not Recovered/Not Resolved]
  - Malaise [Unknown]
